FAERS Safety Report 24586837 (Version 1)
Quarter: 2024Q4

REPORT INFORMATION
  Report Type: Spontaneous
  Country: US (occurrence: US)
  Receive Date: 20241107
  Receipt Date: 20241107
  Transmission Date: 20250114
  Serious: No
  Sender: ASTELLAS
  Company Number: US-ASTELLAS-2024-AER-015775

PATIENT
  Age: 75 Year
  Sex: Female

DRUGS (1)
  1. MYRBETRIQ [Suspect]
     Active Substance: MIRABEGRON
     Indication: Hypertonic bladder
     Dosage: UNKNOWN FREQUENCY
     Route: 065
     Dates: start: 2019

REACTIONS (2)
  - Hypertonic bladder [Unknown]
  - Condition aggravated [Unknown]
